FAERS Safety Report 18894099 (Version 1)
Quarter: 2021Q1

REPORT INFORMATION
  Report Type: Spontaneous
  Country: GB (occurrence: GB)
  Receive Date: 20210215
  Receipt Date: 20210215
  Transmission Date: 20210420
  Serious: Yes (Other)
  Sender: FDA-Public Use
  Company Number: GB-PFIZER INC-2021100147

PATIENT
  Age: 51 Year
  Sex: Male
  Weight: 63.5 kg

DRUGS (2)
  1. LEVOFLOXACIN. [Suspect]
     Active Substance: LEVOFLOXACIN
     Indication: PROSTATE INFECTION
     Dosage: 500 MG, 1X/DAY FOR 28 DAYS
     Route: 048
     Dates: start: 20200721, end: 20200731
  2. ALLOPURINOL. [Concomitant]
     Active Substance: ALLOPURINOL
     Indication: ILL-DEFINED DISORDER
     Dosage: UNK

REACTIONS (4)
  - Pain in extremity [Recovered/Resolved with Sequelae]
  - Tendon injury [Recovered/Resolved with Sequelae]
  - Neck pain [Recovered/Resolved with Sequelae]
  - Gait inability [Recovered/Resolved with Sequelae]

NARRATIVE: CASE EVENT DATE: 20200727
